FAERS Safety Report 5760628-3 (Version None)
Quarter: 2008Q2

REPORT INFORMATION
  Report Type: 
  Country: None (occurrence: None)
  Receive Date: 20080602
  Receipt Date: 20080522
  Transmission Date: 20081010
  Serious: Yes (Death)
  Sender: FDA-Public Use
  Company Number: 163-21880-08051396

PATIENT
  Age: 45 Year
  Sex: Male

DRUGS (2)
  1. REVLIMID [Suspect]
     Indication: MULTIPLE MYELOMA
     Dosage: 10 MG,1 IN 1 D,ORAL; 25 MG, 1 IN 1 D,ORAL
     Route: 048
     Dates: start: 20080123, end: 20080201
  2. REVLIMID [Suspect]
     Indication: MULTIPLE MYELOMA
     Dosage: 10 MG,1 IN 1 D,ORAL; 25 MG, 1 IN 1 D,ORAL
     Route: 048
     Dates: start: 20080307, end: 20080301

REACTIONS (1)
  - DEATH [None]
